FAERS Safety Report 7516650-X (Version None)
Quarter: 2011Q2

REPORT INFORMATION
  Report Type: 
  Country: None (occurrence: None)
  Receive Date: 20110601
  Receipt Date: 20110524
  Transmission Date: 20111010
  Serious: Yes (Hospitalization, Other)
  Sender: FDA-Public Use
  Company Number: US-ROCHE-512840

PATIENT
  Sex: Female
  Weight: 63.5 kg

DRUGS (3)
  1. ACCUTANE [Suspect]
     Route: 048
     Dates: start: 19970313, end: 19970526
  2. ALBUTEROL SULFATE AUTOHALER [Concomitant]
     Indication: ASTHMA
     Route: 055
  3. ACCUTANE [Suspect]
     Indication: ACNE
     Route: 048
     Dates: start: 19941001, end: 19950330

REACTIONS (18)
  - OOPHORECTOMY [None]
  - COLITIS ULCERATIVE [None]
  - OLIGOMENORRHOEA [None]
  - CALCULUS URETERIC [None]
  - INFLAMMATORY BOWEL DISEASE [None]
  - OVARIAN CYST [None]
  - UTERINE POLYP [None]
  - CHRONIC SINUSITIS [None]
  - ENDOMETRIOSIS [None]
  - INFERTILITY [None]
  - DEPRESSION [None]
  - RHINITIS [None]
  - ANXIETY [None]
  - SUNBURN [None]
  - HYPERAESTHESIA [None]
  - CROHN'S DISEASE [None]
  - NASAL SEPTUM DEVIATION [None]
  - COLITIS [None]
